FAERS Safety Report 4344814-5 (Version None)
Quarter: 2004Q2

REPORT INFORMATION
  Report Type: 
  Country: None (occurrence: None)
  Receive Date: 20040420
  Receipt Date: 19980330
  Transmission Date: 20050107
  Serious: Yes (Death, Other)
  Sender: FDA-Public Use
  Company Number: WAES  98041154

PATIENT
  Age: 2 Day
  Sex: Male

DRUGS (2)
  1. INDOCIN I.V. [Suspect]
     Indication: PATENT DUCTUS ARTERIOSUS
     Dosage: 75 MICROGM/DAILY IV
     Route: 042
     Dates: start: 19970403, end: 19970404
  2. DOPAMINE HCL [Concomitant]

REACTIONS (11)
  - BACTERIAL SEPSIS [None]
  - BLOOD GLUCOSE DECREASED [None]
  - BLOOD SODIUM DECREASED [None]
  - HAEMATOCRIT DECREASED [None]
  - HAEMOGLOBIN DECREASED [None]
  - INTESTINAL PERFORATION [None]
  - NEONATAL DISORDER [None]
  - OLIGURIA [None]
  - RED BLOOD CELL COUNT DECREASED [None]
  - RENAL FAILURE [None]
  - WHITE BLOOD CELL COUNT DECREASED [None]
